FAERS Safety Report 9053658 (Version 1)
Quarter: 2013Q1

REPORT INFORMATION
  Report Type: Spontaneous
  Country: US (occurrence: None)
  Receive Date: 20130117
  Receipt Date: 20130117
  Transmission Date: 20140127
  Serious: Yes (Other)
  Sender: FDA-Public Use
  Company Number: TPA2012A01851

PATIENT
  Age: 65 Year
  Sex: Male
  Weight: 104.33 kg

DRUGS (3)
  1. ACTOS (PIOGLITAZONE HYDROCHLORIDE) (TABLETS) [Suspect]
     Indication: TYPE 2 DIABETES MELLITUS
     Dates: start: 20080306, end: 20120201
  2. METFORMIN (METFORMIN ) [Concomitant]
  3. LISPRO INSULIN (INSULIN LISPRO) [Concomitant]

REACTIONS (2)
  - Cystitis [None]
  - Urinary tract infection [None]
